FAERS Safety Report 8354575-0 (Version None)
Quarter: 2012Q2

REPORT INFORMATION
  Report Type: 
  Country: None (occurrence: None)
  Receive Date: 20120511
  Receipt Date: 20120503
  Transmission Date: 20120825
  Serious: Yes (Other)
  Sender: FDA-Public Use
  Company Number: US-JNJFOC-20120504821

PATIENT
  Age: 80 Year
  Sex: Female

DRUGS (1)
  1. XARELTO [Suspect]
     Indication: HIP ARTHROPLASTY
     Route: 048

REACTIONS (2)
  - TRAUMATIC HAEMORRHAGE [None]
  - FALL [None]
